FAERS Safety Report 6983833-7 (Version None)
Quarter: 2010Q3

REPORT INFORMATION
  Report Type: 
  Country: None (occurrence: None)
  Receive Date: 20100914
  Receipt Date: 20090309
  Transmission Date: 20110219
  Serious: No
  Sender: FDA-Public Use
  Company Number: US-WYE-H08525309

PATIENT
  Age: 49 Year
  Sex: Female
  Weight: 78.54 kg

DRUGS (1)
  1. ADVIL LIQUI-GELS [Suspect]
     Indication: PAIN
     Route: 048
     Dates: start: 20090308, end: 20090308

REACTIONS (2)
  - PRODUCT QUALITY ISSUE [None]
  - THROAT IRRITATION [None]
